FAERS Safety Report 7353697-0 (Version None)
Quarter: 2011Q1

REPORT INFORMATION
  Report Type: 
  Country: None (occurrence: None)
  Receive Date: 20110315
  Receipt Date: 20081122
  Transmission Date: 20110831
  Serious: Yes (Death, Other)
  Sender: FDA-Public Use
  Company Number: US-BAYER-200839336NA

PATIENT
  Sex: Male
  Weight: 58.957 kg

DRUGS (41)
  1. TRASYLOL [Suspect]
     Indication: ATRIAL SEPTAL DEFECT
  2. AUGMENTIN '125' [Concomitant]
     Dosage: 875 MG, TID
     Route: 048
     Dates: start: 20041218
  3. UNASYN [Concomitant]
     Dosage: 3 G EVERY 6 HOURS
     Route: 042
     Dates: start: 20050406, end: 20050411
  4. DEMEROL [Concomitant]
     Dosage: 25 MG, Q1HR PRN
     Route: 042
     Dates: start: 20050406, end: 20050411
  5. NATRECOR [Concomitant]
     Dosage: PER PROTOCOL
     Route: 042
     Dates: start: 20050421, end: 20050422
  6. NITROGLYCERIN [Concomitant]
     Dosage: 25MG/HR
     Dates: start: 20050425
  7. DOPAMINE [Concomitant]
     Dosage: 3-5 MCG/KG/MIN
     Route: 042
     Dates: start: 20050425
  8. VERSED [Concomitant]
     Dosage: 10 MG, UNK
     Route: 042
     Dates: start: 20050425, end: 20050425
  9. ASPIRIN [Concomitant]
     Dosage: 325 MG, DAILY
     Route: 048
     Dates: start: 20050401
  10. BENADRYL [Concomitant]
     Dosage: 25 MG, ONCE
     Route: 048
     Dates: start: 20050422, end: 20050422
  11. SUCCINYLCHOLINE CHLORIDE [Concomitant]
     Dosage: 200 UNK, UNK
     Route: 042
     Dates: start: 20050425, end: 20050425
  12. PAVULON [Concomitant]
     Dosage: 10 UNK, UNK
     Route: 042
     Dates: start: 20050425, end: 20050425
  13. MANNITOL [Concomitant]
     Dosage: 100, CARDIOPULMONARY BYPASS
     Dates: start: 20050425, end: 20050425
  14. VISIPAQUE [Concomitant]
     Dosage: 140 CC, UNK
     Dates: start: 20050422
  15. LORCET-HD [Concomitant]
     Dosage: 1 TABLET EVERY 6 HOURS AS NEEDED
     Route: 048
     Dates: start: 20041218
  16. VERSED [Concomitant]
     Dosage: 1 MG, UNK
     Route: 042
     Dates: start: 20050422, end: 20050422
  17. LASIX [Concomitant]
     Dosage: 40 MG, UNK
     Route: 042
     Dates: start: 20050421, end: 20050421
  18. LASIX [Concomitant]
     Dosage: 20 MG EVERY 6 HOURS
     Route: 042
     Dates: start: 20050422
  19. VALIUM [Concomitant]
     Dosage: 5 MG, ONCE
     Route: 048
     Dates: start: 20050422, end: 20050422
  20. CARDIOPLEGIA [Concomitant]
     Dosage: 2800 ML, CARDIOPULMONARY BYPASS
     Dates: start: 20050425, end: 20050425
  21. MORPHINE [Concomitant]
     Dosage: 2 MG, UNK
     Route: 042
     Dates: start: 20050406, end: 20050406
  22. ZANTAC [Concomitant]
     Dosage: 150 MG, ONCE
     Route: 048
     Dates: start: 20050422, end: 20050422
  23. AMOXI CLAVULAN STADA [Concomitant]
     Dosage: 875/125 MG
     Route: 048
     Dates: start: 20041218
  24. FENTANYL [Concomitant]
     Dosage: 15 CC, UNK
     Route: 042
     Dates: start: 20050425, end: 20050425
  25. RED BLOOD CELLS [Concomitant]
     Dosage: 2 U, UNK
     Dates: start: 20050425, end: 20050425
  26. TRASYLOL [Suspect]
     Indication: CORONARY ARTERY BYPASS
     Dosage: 200 ML, UNK
     Route: 042
     Dates: start: 20050425
  27. TRASYLOL [Suspect]
     Indication: MITRAL VALVE REPAIR
     Dosage: 50 CC/HR
     Route: 042
     Dates: start: 20050425, end: 20050425
  28. HEPARIN [Concomitant]
     Dosage: 30000 U, UNK
     Dates: start: 20050425, end: 20050425
  29. VERSED [Concomitant]
     Dosage: 4 MG, UNK
     Route: 042
     Dates: start: 20050406, end: 20050406
  30. AMOXICILLIN [Concomitant]
     Dosage: 500 MG, UNK
     Route: 048
     Dates: start: 20031226
  31. CEFEPIME [Concomitant]
     Dosage: 1 G, UNK
     Route: 042
     Dates: start: 20050425, end: 20050425
  32. AMIODARONE HCL [Concomitant]
     Indication: VENTRICULAR FIBRILLATION
     Dosage: UNK
     Route: 042
     Dates: start: 20050425
  33. LIDOCAINE [Concomitant]
     Dosage: 100 MG, CARDIOPULMONARY BYPASS
     Dates: start: 20050425, end: 20050425
  34. LEVAQUIN [Concomitant]
     Dosage: 500 MG, QD
     Route: 048
     Dates: start: 20041218
  35. LISINOPRIL [Concomitant]
     Dosage: 2.5 MG, DAILY
     Route: 048
     Dates: start: 20050422
  36. LOPRESSOR [Concomitant]
     Dosage: 12.5 MG, TWICE DAILY
     Route: 048
     Dates: start: 20050422
  37. NITROGLYCERIN [Concomitant]
     Dosage: 1 INCH EVERY 12 HOURS
     Route: 061
     Dates: start: 20050421
  38. PROTAMINE SULFATE [Concomitant]
     Dosage: 300 UNK, UNK
     Route: 042
     Dates: start: 20050425, end: 20050425
  39. HEPARIN [Concomitant]
     Dosage: 5000 U, Q8H
     Route: 058
     Dates: start: 20050407, end: 20050411
  40. PLATELETS [Concomitant]
     Dosage: 6 PACK
     Route: 042
     Dates: start: 20050425, end: 20050425
  41. ALBUMIN (HUMAN) [Concomitant]
     Dosage: 50 ML, CARDIOPULMONARY BYPASS
     Dates: start: 20050425, end: 20050425

REACTIONS (13)
  - INJURY [None]
  - DEATH [None]
  - RENAL INJURY [None]
  - FEAR [None]
  - EMOTIONAL DISTRESS [None]
  - PAIN [None]
  - ANHEDONIA [None]
  - MULTI-ORGAN FAILURE [None]
  - RENAL IMPAIRMENT [None]
  - STRESS [None]
  - RENAL FAILURE [None]
  - ANXIETY [None]
  - UNEVALUABLE EVENT [None]
